FAERS Safety Report 8036292-X (Version None)
Quarter: 2012Q1

REPORT INFORMATION
  Report Type: 
  Country: None (occurrence: None)
  Receive Date: 20120111
  Receipt Date: 20120106
  Transmission Date: 20120608
  Serious: Yes (Hospitalization)
  Sender: FDA-Public Use
  Company Number: PHHY2012FR001531

PATIENT
  Sex: Male

DRUGS (12)
  1. DIAMICRON [Concomitant]
  2. BISOPROLOL FUMARATE [Concomitant]
  3. VALSARTAN  AND HYDROCHLOROTHIAZIDE [Suspect]
     Dosage: 160 MG VALS/25 MG HCT, QD
     Dates: end: 20110912
  4. VICTOZA [Concomitant]
  5. PREVISCAN [Concomitant]
  6. GLUCOPHAGE [Suspect]
     Dosage: 1000 MG, TID
     Dates: end: 20110912
  7. LANTUS [Concomitant]
  8. HYPERIUM [Concomitant]
  9. PERMIXON [Concomitant]
  10. CALCIUM CARBONATE [Suspect]
     Indication: HYPOCALCAEMIA
     Dosage: 3 G, UNK
     Dates: start: 20110902, end: 20110912
  11. UN-ALFA [Suspect]
     Indication: HYPOCALCAEMIA
     Dosage: 3 UG, DAILY
     Dates: start: 20110902, end: 20110912
  12. ATORVASTATIN CALCIUM [Concomitant]

REACTIONS (7)
  - DEHYDRATION [None]
  - HYPERCALCAEMIA [None]
  - MUCOSAL DRYNESS [None]
  - HYPOCALCAEMIA [None]
  - THIRST [None]
  - RENAL FAILURE [None]
  - CREATININE RENAL CLEARANCE DECREASED [None]
